FAERS Safety Report 14340962 (Version 3)
Quarter: 2018Q1

REPORT INFORMATION
  Report Type: Spontaneous
  Country: FI (occurrence: FI)
  Receive Date: 20180102
  Receipt Date: 20180110
  Transmission Date: 20180509
  Serious: Yes (Hospitalization)
  Sender: FDA-Public Use
  Company Number: FI-009507513-1712FIN014123

PATIENT
  Age: 68 Year
  Sex: Male

DRUGS (15)
  1. FURESIS [Concomitant]
     Active Substance: FUROSEMIDE
     Dosage: 40 MG, BID; ONE IN THE MORNING AND ONE IN THE EVENING (1 + 1/2)
  2. PRIMASPAN [Concomitant]
     Active Substance: ASPIRIN
     Dosage: 100 MG, QD (1X1)
  3. HISTEC [Concomitant]
     Active Substance: CETIRIZINE HYDROCHLORIDE
     Dosage: 10 MG, WHEN NEEDED
  4. PANADOL [Concomitant]
     Active Substance: ACETAMINOPHEN
     Dosage: 1 G, WHEN NEEDED
  5. HUMALOG [Concomitant]
     Active Substance: INSULIN LISPRO
     Dosage: QUICKPEN (STRENGTH: 200 U/ML); SEPARATE INSTRUCTION
  6. BISOPROLOL [Concomitant]
     Active Substance: BISOPROLOL
     Dosage: 2.5 MG, ONCE A DAY (1X1)
  7. PEGORION [Concomitant]
     Active Substance: POLYETHYLENE GLYCOL 4000
     Dosage: 1.25 MG, WHEN NEEDED
  8. CUBICIN [Suspect]
     Active Substance: DAPTOMYCIN
     Indication: OSTEITIS
     Dosage: 700 MG DILUTED IN 100 ML OF SODIUM CHLORIDE
     Dates: start: 201712, end: 20171224
  9. SOMAC [Concomitant]
     Active Substance: PANTOPRAZOLE SODIUM
     Dosage: 40 MG, QD (1X1)
  10. TOUJEO [Concomitant]
     Active Substance: INSULIN GLARGINE
     Dosage: (STRENGTH: 300U/ML) 22 UNITS, ONCE A DAY (22X1)
  11. SPIRONOLACTONE. [Concomitant]
     Active Substance: SPIRONOLACTONE
     Dosage: 25 MG TABLET PER DAY (1/2 X 1)
     Route: 048
  12. APURIN [Concomitant]
     Active Substance: ALLOPURINOL
     Dosage: 300 MG, PER DAY (1/2 X 1)
  13. INVANZ [Concomitant]
     Active Substance: ERTAPENEM SODIUM
     Dosage: UNK
  14. VENTOLINE (ALBUTEROL SULFATE) [Concomitant]
     Active Substance: ALBUTEROL SULFATE
     Dosage: 0.1 MG, WHEN NEEDED
  15. DINIT [Concomitant]
     Active Substance: ISOSORBIDE DINITRATE
     Dosage: UNK, WHEN NEEDED

REACTIONS (5)
  - Liver function test increased [Unknown]
  - Gout [Unknown]
  - Tremor [Unknown]
  - Pyrexia [Unknown]
  - Adverse reaction [Unknown]

NARRATIVE: CASE EVENT DATE: 201712
